FAERS Safety Report 23319814 (Version 1)
Quarter: 2023Q4

REPORT INFORMATION
  Report Type: Spontaneous
  Country: GB (occurrence: GB)
  Receive Date: 20231220
  Receipt Date: 20231220
  Transmission Date: 20240109
  Serious: Yes (Hospitalization)
  Sender: FDA-Public Use
  Company Number: None

PATIENT
  Age: 79 Year
  Sex: Female
  Weight: 51 kg

DRUGS (4)
  1. ZOLEDRONIC ACID [Suspect]
     Active Substance: ZOLEDRONIC ACID
     Indication: Osteoporosis
     Dosage: 5 MG INTRAVENOUS EVERY 18 MONTHS. THIS WAS 1ST DOSE. ; ;
  2. LATANOPROST [Concomitant]
     Active Substance: LATANOPROST
  3. TIMOLOL [Concomitant]
     Active Substance: TIMOLOL
  4. VITAMIN D [Concomitant]
     Active Substance: VITAMIN D NOS
     Indication: Osteoporosis

REACTIONS (1)
  - Electrolyte imbalance [Recovered/Resolved]
